FAERS Safety Report 18691475 (Version 1)
Quarter: 2021Q1

REPORT INFORMATION
  Report Type: Spontaneous
  Country: CN (occurrence: CN)
  Receive Date: 20210101
  Receipt Date: 20210101
  Transmission Date: 20210419
  Serious: Yes (Hospitalization, Other)
  Sender: FDA-Public Use
  Company Number: CN-ASTRAZENECA-2020SF75388

PATIENT
  Age: 26325 Day
  Sex: Male
  Weight: 69 kg

DRUGS (2)
  1. IMFINZI [Suspect]
     Active Substance: DURVALUMAB
     Indication: NEUROENDOCRINE TUMOUR OF THE LUNG
     Route: 041
     Dates: start: 20200922, end: 20200922
  2. ZOLEDRONIC ACID [Concomitant]
     Active Substance: ZOLEDRONIC ACID
     Indication: BONE OPERATION
     Route: 065

REACTIONS (4)
  - Red blood cells urine positive [Recovering/Resolving]
  - Urinary tract infection [Unknown]
  - Blood creatinine increased [Recovering/Resolving]
  - White blood cells urine positive [Recovering/Resolving]

NARRATIVE: CASE EVENT DATE: 202010
